FAERS Safety Report 11545622 (Version 2)
Quarter: 2015Q4

REPORT INFORMATION
  Report Type: Report from Study
  Country: US (occurrence: US)
  Receive Date: 20150924
  Receipt Date: 20151006
  Transmission Date: 20160304
  Serious: Yes (Hospitalization)
  Sender: FDA-Public Use
  Company Number: US-PFIZER INC-2015312498

PATIENT
  Age: 14 Year
  Sex: Male
  Weight: 46.3 kg

DRUGS (30)
  1. MARINOL [Concomitant]
     Active Substance: DRONABINOL
     Indication: PROPHYLAXIS OF NAUSEA AND VOMITING
     Dosage: UNK
     Dates: start: 20150902, end: 20150904
  2. HYDROCORTISONE SODIUM SUCCINATE [Suspect]
     Active Substance: HYDROCORTISONE SODIUM SUCCINATE
     Indication: NERVOUS SYSTEM DISORDER
     Dosage: 24 MG, SINGLE
     Route: 037
     Dates: start: 20150910, end: 20150910
  3. METHOTREXATE SODIUM. [Suspect]
     Active Substance: METHOTREXATE SODIUM
     Indication: DISEASE RECURRENCE
  4. DOLOPHINE [Concomitant]
     Active Substance: METHADONE HYDROCHLORIDE
     Indication: PAIN MANAGEMENT
     Dosage: UNK
     Dates: start: 20150903
  5. HYDROCORTISONE SODIUM SUCCINATE [Suspect]
     Active Substance: HYDROCORTISONE SODIUM SUCCINATE
     Indication: DISEASE RECURRENCE
  6. SOLU-MEDROL [Concomitant]
     Active Substance: METHYLPREDNISOLONE SODIUM SUCCINATE
     Indication: PREMEDICATION
     Dosage: UNK
     Dates: start: 20150909, end: 20150909
  7. TRANSDERM SCOP [Concomitant]
     Active Substance: SCOPOLAMINE
     Indication: PROPHYLAXIS OF NAUSEA AND VOMITING
     Dosage: UNK
     Dates: start: 20150903, end: 20150904
  8. VISTARIL [Concomitant]
     Active Substance: HYDROXYZINE PAMOATE
     Indication: NAUSEA
     Dosage: UNK
     Dates: start: 20150902, end: 20150904
  9. KYTRIL [Concomitant]
     Active Substance: GRANISETRON HYDROCHLORIDE
     Indication: NAUSEA
     Dosage: UNK
     Dates: start: 20150903, end: 20150904
  10. LEUCOVORIN. [Concomitant]
     Active Substance: LEUCOVORIN
     Dosage: UNK
     Dates: start: 20150831
  11. CYTARABINE. [Suspect]
     Active Substance: CYTARABINE
     Indication: NERVOUS SYSTEM DISORDER
     Dosage: 36 MG 1.8 ML, SINGLE (ONCE)
     Route: 037
     Dates: start: 20150910, end: 20150910
  12. OMNIPAQUE [Concomitant]
     Active Substance: IOHEXOL
     Indication: COMPUTERISED TOMOGRAM
     Dosage: UNK
     Dates: start: 20150912, end: 20150912
  13. ZOLOFT [Concomitant]
     Active Substance: SERTRALINE HYDROCHLORIDE
     Indication: ANTIDEPRESSANT THERAPY
     Dosage: UNK
     Dates: start: 20150902
  14. PREVACID [Concomitant]
     Active Substance: LANSOPRAZOLE
     Indication: DYSPEPSIA
     Dosage: UNK
     Dates: start: 20150903, end: 20150904
  15. MYLOTARG [Suspect]
     Active Substance: GEMTUZUMAB OZOGAMICIN
     Indication: ACUTE MYELOID LEUKAEMIA
     Dosage: 6.2 MG, SINGLE
     Route: 042
     Dates: start: 20150909, end: 20150909
  16. CYTARABINE. [Suspect]
     Active Substance: CYTARABINE
     Indication: DISEASE RECURRENCE
  17. HEPARIN SODIUM. [Concomitant]
     Active Substance: HEPARIN SODIUM
     Indication: FLUSHING
     Dosage: UNK
     Dates: start: 20150902
  18. MORPHINE SULFATE. [Concomitant]
     Active Substance: MORPHINE SULFATE
     Indication: PAIN
     Dosage: UNK
     Dates: start: 20150902
  19. BENADRYL [Concomitant]
     Active Substance: DIPHENHYDRAMINE HYDROCHLORIDE
     Indication: NAUSEA
     Dosage: UNK
     Dates: start: 20150903
  20. DOTAREM [Concomitant]
     Active Substance: GADOTERATE MEGLUMINE
     Indication: X-RAY
     Dosage: UNK
     Dates: start: 20150904, end: 20150904
  21. SENOKOT [Concomitant]
     Active Substance: SENNOSIDES
     Indication: CONSTIPATION
     Dosage: UNK
     Dates: start: 20150902, end: 20150904
  22. BACTRIM [Concomitant]
     Active Substance: SULFAMETHOXAZOLE\TRIMETHOPRIM
     Indication: ANTIBIOTIC THERAPY
     Dosage: UNK
     Dates: start: 20150902
  23. METHOTREXATE SODIUM. [Suspect]
     Active Substance: METHOTREXATE SODIUM
     Indication: NERVOUS SYSTEM DISORDER
     Dosage: 12 MG 0.48 ML, SINGLE (ONCE)
     Route: 037
     Dates: start: 20150910, end: 20150910
  24. ATIVAN [Concomitant]
     Active Substance: LORAZEPAM
     Indication: NAUSEA
     Dosage: UNK
     Dates: start: 20150902
  25. KYTRIL [Concomitant]
     Active Substance: GRANISETRON HYDROCHLORIDE
     Indication: VOMITING
  26. TYLENOL [Concomitant]
     Active Substance: ACETAMINOPHEN
     Indication: PAIN
     Dosage: UNK
     Dates: start: 20150902
  27. CELEBREX [Concomitant]
     Active Substance: CELECOXIB
     Indication: INFLAMMATION
     Dosage: UNK
     Dates: start: 20150902, end: 20150904
  28. DILAUDID [Concomitant]
     Active Substance: HYDROMORPHONE HYDROCHLORIDE
     Indication: PAIN MANAGEMENT
     Dosage: UNK
     Dates: start: 20150902, end: 20150903
  29. LEUCOVORIN CALCIUM. [Concomitant]
     Active Substance: LEUCOVORIN CALCIUM
     Indication: PROPHYLAXIS
     Dosage: UNK
     Dates: start: 20150902
  30. VISTARIL [Concomitant]
     Active Substance: HYDROXYZINE PAMOATE
     Indication: VOMITING

REACTIONS (1)
  - Seizure [Recovered/Resolved]

NARRATIVE: CASE EVENT DATE: 20150913
